FAERS Safety Report 8819867 (Version 2)
Quarter: 2014Q3

REPORT INFORMATION
  Report Type: Report from Study
  Country: US (occurrence: US)
  Receive Date: 20121001
  Receipt Date: 20140910
  Transmission Date: 20150326
  Serious: Yes (Death, Other)
  Sender: FDA-Public Use
  Company Number: US-ROCHE-1129671

PATIENT
  Sex: Female
  Weight: 45 kg

DRUGS (15)
  1. HERCEPTIN [Suspect]
     Active Substance: TRASTUZUMAB
     Indication: NON-SMALL CELL LUNG CANCER
     Dosage: LOADING DOSE
     Route: 042
     Dates: start: 19981112
  2. DEXAMETHASONE. [Concomitant]
     Active Substance: DEXAMETHASONE
     Route: 065
  3. LASIX [Concomitant]
     Active Substance: FUROSEMIDE
     Route: 065
  4. HERCEPTIN [Suspect]
     Active Substance: TRASTUZUMAB
     Dosage: MAINTENANCE DOSE (2MG/KG)
     Route: 065
  5. TAGAMET [Concomitant]
     Active Substance: CIMETIDINE
     Route: 042
  6. BENADRYL [Concomitant]
     Active Substance: DIPHENHYDRAMINE HYDROCHLORIDE
     Route: 042
  7. DECADRON [Concomitant]
     Active Substance: DEXAMETHASONE
     Route: 042
  8. COUMADIN [Concomitant]
     Active Substance: WARFARIN SODIUM
     Route: 065
  9. UROKINASE [Concomitant]
     Active Substance: UROKINASE
     Dosage: 5000U
     Route: 065
  10. NEUPOGEN [Suspect]
     Active Substance: FILGRASTIM
     Indication: PRODUCT USED FOR UNKNOWN INDICATION
     Dosage: X5 DAYS
     Route: 058
  11. TAXOL [Suspect]
     Active Substance: PACLITAXEL
     Route: 042
  12. COMPAZINE SR [Concomitant]
     Route: 065
  13. TAXOL [Suspect]
     Active Substance: PACLITAXEL
     Indication: PRODUCT USED FOR UNKNOWN INDICATION
     Dosage: 80MG/M2
     Route: 042
  14. ONDANSETRON [Concomitant]
     Active Substance: ONDANSETRON
     Route: 048
  15. PAMIDRONATE [Concomitant]
     Active Substance: PAMIDRONATE DISODIUM
     Dosage: OVER 2 HOURS
     Route: 042

REACTIONS (13)
  - Metastases to central nervous system [Unknown]
  - Muscular weakness [Unknown]
  - Skin abrasion [Unknown]
  - Off label use [Unknown]
  - Neuropathy peripheral [Unknown]
  - Death [Fatal]
  - Bone pain [Unknown]
  - Pyrexia [Unknown]
  - Weight decreased [Unknown]
  - Cough [Unknown]
  - General physical health deterioration [Unknown]
  - Alopecia [Unknown]
  - Candida infection [Unknown]
